FAERS Safety Report 5140326-X (Version None)
Quarter: 2006Q4

REPORT INFORMATION
  Report Type: 
  Country: None (occurrence: None)
  Receive Date: 20061031
  Receipt Date: 20040824
  Transmission Date: 20070319
  Serious: Yes (Hospitalization)
  Sender: FDA-Public Use
  Company Number: GB-MERCK-0408GBR00250

PATIENT
  Age: 69 Year
  Sex: Male
  Weight: 76 kg

DRUGS (3)
  1. ZOCOR [Suspect]
     Indication: HYPERCHOLESTEROLAEMIA
     Route: 048
     Dates: start: 19961201, end: 20000501
  2. LISINOPRIL [Concomitant]
     Indication: HYPERTENSION
     Route: 065
  3. ALLOPURINOL SODIUM [Concomitant]
     Indication: GOUT
     Route: 065

REACTIONS (4)
  - GLYCOGEN STORAGE DISEASE TYPE V [None]
  - LOSS OF CONSCIOUSNESS [None]
  - MUSCULAR WEAKNESS [None]
  - MYOSITIS [None]
